FAERS Safety Report 7610367-9 (Version None)
Quarter: 2011Q3

REPORT INFORMATION
  Report Type: 
  Country: None (occurrence: None)
  Receive Date: 20110715
  Receipt Date: 20110701
  Transmission Date: 20111222
  Serious: Yes (Other)
  Sender: FDA-Public Use
  Company Number: US-RANBAXY-2011RR-45868

PATIENT
  Sex: Male

DRUGS (7)
  1. LEVAQUIN [Suspect]
     Dosage: 750 MG, UNK
     Route: 048
  2. LEVAQUIN [Suspect]
     Dosage: 750 MG, UNK
     Route: 048
     Dates: start: 20071201
  3. LEVAQUIN [Suspect]
     Dosage: UNK
     Route: 048
     Dates: start: 20091230
  4. CIPROFLOXACIN [Suspect]
     Indication: INFECTION
     Dosage: UNK
     Route: 065
     Dates: start: 20070101
  5. LEVAQUIN [Suspect]
     Dosage: 500 MG, UNK
     Route: 048
     Dates: start: 20031230
  6. LEVAQUIN [Suspect]
     Indication: RESPIRATORY TRACT INFECTION
     Dosage: UNK
     Route: 048
     Dates: start: 20090216, end: 20090301
  7. LEVAQUIN [Suspect]
     Dosage: 750 MG, UNK
     Route: 048
     Dates: start: 20081211

REACTIONS (5)
  - ROTATOR CUFF SYNDROME [None]
  - RASH [None]
  - PRURITUS [None]
  - TENDONITIS [None]
  - TENDON RUPTURE [None]
